FAERS Safety Report 16899929 (Version 1)
Quarter: 2019Q4

REPORT INFORMATION
  Report Type: Spontaneous
  Country: RU (occurrence: RU)
  Receive Date: 20191009
  Receipt Date: 20191009
  Transmission Date: 20200122
  Serious: Yes (Death, Other)
  Sender: FDA-Public Use
  Company Number: RU-BAUSCH-BL-2019-057275

PATIENT
  Age: 53 Year
  Sex: Male
  Weight: 92 kg

DRUGS (8)
  1. CALCIUM FOLINATE [Suspect]
     Active Substance: LEUCOVORIN CALCIUM
     Route: 065
     Dates: start: 20190907, end: 20190907
  2. ZALTRAP [Suspect]
     Active Substance: ZIV-AFLIBERCEPT
     Indication: COLON CANCER
     Route: 065
     Dates: start: 20190821, end: 20190821
  3. ZALTRAP [Suspect]
     Active Substance: ZIV-AFLIBERCEPT
     Route: 065
     Dates: start: 20190907, end: 20190907
  4. IRINOTECAN [Suspect]
     Active Substance: IRINOTECAN
     Route: 065
     Dates: start: 20190907, end: 20190907
  5. FLUOROURACIL. [Suspect]
     Active Substance: FLUOROURACIL
     Route: 065
     Dates: start: 20190907, end: 20190907
  6. CALCIUM FOLINATE [Suspect]
     Active Substance: LEUCOVORIN CALCIUM
     Indication: COLON CANCER
     Route: 065
     Dates: start: 20190821, end: 20190821
  7. FLUOROURACIL. [Suspect]
     Active Substance: FLUOROURACIL
     Indication: COLON CANCER
     Route: 065
     Dates: start: 20190821, end: 20190821
  8. IRINOTECAN [Suspect]
     Active Substance: IRINOTECAN
     Indication: COLON CANCER
     Route: 065
     Dates: start: 20190821, end: 20190821

REACTIONS (1)
  - Enterovesical fistula [Fatal]

NARRATIVE: CASE EVENT DATE: 20190907
